FAERS Safety Report 21985022 (Version 1)
Quarter: 2023Q1

REPORT INFORMATION
  Report Type: Spontaneous
  Country: US (occurrence: None)
  Receive Date: 20230210
  Receipt Date: 20230210
  Transmission Date: 20230417
  Serious: No
  Sender: FDA-Public Use
  Company Number: None

PATIENT
  Age: 34 Year
  Sex: Female
  Weight: 75.6 kg

DRUGS (1)
  1. OCREVUS [Suspect]
     Active Substance: OCRELIZUMAB
     Indication: Multiple sclerosis
     Dosage: OTHER FREQUENCY : Q 6 MONTHS;?
     Route: 042
     Dates: start: 20230209

REACTIONS (6)
  - Infusion related reaction [None]
  - Ear pruritus [None]
  - Throat irritation [None]
  - Rash erythematous [None]
  - Acne [None]
  - Inflammation [None]

NARRATIVE: CASE EVENT DATE: 20230209
